FAERS Safety Report 5343524-5 (Version None)
Quarter: 2007Q2

REPORT INFORMATION
  Report Type: 
  Country: None (occurrence: None)
  Receive Date: 20070604
  Receipt Date: 20070523
  Transmission Date: 20071010
  Serious: Yes (Other)
  Sender: FDA-Public Use
  Company Number: PHBS2007GB08751

PATIENT
  Age: 42 Year
  Sex: Male

DRUGS (2)
  1. ZOMETA [Suspect]
     Indication: CHRONIC MYELOID LEUKAEMIA
     Dosage: 4 MG/MONTH
     Route: 042
  2. GLEEVEC [Concomitant]
     Indication: CHRONIC MYELOID LEUKAEMIA
     Dosage: 400 MG/DAY

REACTIONS (6)
  - COUGH [None]
  - DRUG INEFFECTIVE [None]
  - HYPOPHOSPHATAEMIA [None]
  - MUSCLE SPASMS [None]
  - MYALGIA [None]
  - PHARYNGOLARYNGEAL PAIN [None]
